FAERS Safety Report 6862788-X (Version None)
Quarter: 2010Q3

REPORT INFORMATION
  Report Type: 
  Country: None (occurrence: None)
  Receive Date: 20100721
  Receipt Date: 20100715
  Transmission Date: 20110219
  Serious: Yes (Hospitalization)
  Sender: FDA-Public Use
  Company Number: SE-AMGEN-US177462

PATIENT
  Sex: Female

DRUGS (19)
  1. ENBREL [Suspect]
     Indication: RHEUMATOID ARTHRITIS
     Route: 051
     Dates: start: 19990501, end: 20060102
  2. TRIATEC [Concomitant]
  3. NITROMEX [Concomitant]
  4. LEVOTHYROXINE SODIUM [Concomitant]
  5. LEUKERAN [Concomitant]
  6. INDOMEE [Concomitant]
  7. BEHEPAN [Concomitant]
  8. TAVEGYL [Concomitant]
  9. CONFORTID [Concomitant]
  10. PREDNISOLONE [Concomitant]
  11. SELOKEN [Concomitant]
  12. ACETAMINOPHEN W/ CODEINE [Concomitant]
  13. TREO COMP [Concomitant]
  14. NORVASC [Concomitant]
  15. OXASCAND [Concomitant]
  16. PRILOSEC [Concomitant]
  17. OPTINATE [Concomitant]
  18. KETOPROFEN [Concomitant]
  19. LEUCOVORIN [Concomitant]

REACTIONS (1)
  - BREAST CANCER FEMALE [None]
